FAERS Safety Report 6755429-3 (Version None)
Quarter: 2010Q2

REPORT INFORMATION
  Report Type: 
  Country: None (occurrence: None)
  Receive Date: 20100604
  Receipt Date: 20100525
  Transmission Date: 20101027
  Serious: Yes (Hospitalization)
  Sender: FDA-Public Use
  Company Number: JP-JNJFOC-20100510460

PATIENT
  Age: 55 Year
  Sex: Female

DRUGS (1)
  1. INFLIXIMAB [Suspect]
     Indication: RHEUMATOID ARTHRITIS
     Route: 042

REACTIONS (4)
  - ASCITES [None]
  - DISSEMINATED TUBERCULOSIS [None]
  - LYMPHADENOPATHY [None]
  - PLEURAL EFFUSION [None]
